FAERS Safety Report 10671459 (Version 3)
Quarter: 2015Q1

REPORT INFORMATION
  Report Type: Report from Study
  Country: CA (occurrence: CA)
  Receive Date: 20141223
  Receipt Date: 20150217
  Transmission Date: 20150720
  Serious: Yes (Other)
  Sender: FDA-Public Use
  Company Number: CA-BIOMARINAP-CA-2014-105054

PATIENT
  Age: 19 Year
  Sex: Male

DRUGS (4)
  1. ALDURAZYME [Suspect]
     Active Substance: LARONIDASE
     Indication: MUCOPOLYSACCHARIDOSIS I
     Dosage: 55.1 MG, QW
     Route: 042
     Dates: start: 201411
  2. ALDURAZYME [Suspect]
     Active Substance: LARONIDASE
     Dosage: 55.1 MG, QW
     Route: 042
     Dates: start: 2000, end: 20140711
  3. VENTOLIN [Concomitant]
     Active Substance: ALBUTEROL SULFATE
     Indication: PRODUCT USED FOR UNKNOWN INDICATION
     Dosage: UNK
  4. PROZAC [Concomitant]
     Active Substance: FLUOXETINE HYDROCHLORIDE
     Indication: PRODUCT USED FOR UNKNOWN INDICATION

REACTIONS (4)
  - Ocular discomfort [Not Recovered/Not Resolved]
  - Eye pain [Not Recovered/Not Resolved]
  - Vitreous floaters [Not Recovered/Not Resolved]
  - Eye disorder [Not Recovered/Not Resolved]

NARRATIVE: CASE EVENT DATE: 20141104
